FAERS Safety Report 4485402-X (Version None)
Quarter: 2004Q4

REPORT INFORMATION
  Report Type: 
  Country: None (occurrence: None)
  Receive Date: 20041025
  Receipt Date: 20041025
  Transmission Date: 20050328
  Serious: Yes (Other)
  Sender: FDA-Public Use
  Company Number: None

PATIENT
  Sex: Male
  Weight: 106.5953 kg

DRUGS (6)
  1. PANHEMATIN [Suspect]
     Indication: PORPHYRIA
     Dosage: 3MG KG INTRAVENOUS
     Route: 042
     Dates: start: 20041022, end: 20041022
  2. DURAGESIC [Concomitant]
  3. MS CONTIN [Concomitant]
  4. MS CONTIN [Concomitant]
  5. KLONOPIN [Concomitant]
  6. NEURONTIN [Concomitant]

REACTIONS (1)
  - HEART RATE IRREGULAR [None]
